FAERS Safety Report 7114108-3 (Version None)
Quarter: 2010Q4

REPORT INFORMATION
  Report Type: 
  Country: None (occurrence: None)
  Receive Date: 20101119
  Receipt Date: 20101115
  Transmission Date: 20110411
  Serious: Yes (Hospitalization)
  Sender: FDA-Public Use
  Company Number: SE-PFIZER INC-2010147944

PATIENT
  Age: 73 Year
  Sex: Male
  Weight: 82 kg

DRUGS (6)
  1. EPLERENONE [Suspect]
     Indication: CARDIAC FAILURE CHRONIC
     Dosage: 25 MG, ALTERNATE DAY
     Route: 048
     Dates: start: 20101007, end: 20101109
  2. EPLERENONE [Suspect]
     Dosage: 25 MG, 1X/DAY
     Route: 048
     Dates: start: 20101110, end: 20101111
  3. WARFARIN [Concomitant]
     Dosage: 2.5 MG, UNK
     Dates: start: 20090220
  4. ENALAPRIL [Concomitant]
     Dosage: 5 MG, UNK
     Dates: start: 20090602
  5. BISOPROLOL [Concomitant]
     Dosage: 7.5 MG, UNK
     Dates: start: 20090711
  6. TRADOLAN [Concomitant]
     Dosage: 50 MG, UNK
     Dates: start: 20100913, end: 20101111

REACTIONS (1)
  - MUSCLE SPASMS [None]
